FAERS Safety Report 12770761 (Version 2)
Quarter: 2016Q4

REPORT INFORMATION
  Report Type: Report from Study
  Country: BE (occurrence: BE)
  Receive Date: 20160922
  Receipt Date: 20161013
  Transmission Date: 20170207
  Serious: Yes (Other)
  Sender: FDA-Public Use
  Company Number: BE-JNJFOC-20160917243

PATIENT
  Age: 45 Year
  Sex: Male

DRUGS (3)
  1. GOLIMUMAB [Suspect]
     Active Substance: GOLIMUMAB
     Indication: ANKYLOSING SPONDYLITIS
     Route: 058
     Dates: start: 201512, end: 20160321
  2. ARCOXIA [Concomitant]
     Active Substance: ETORICOXIB
     Indication: ANKYLOSING SPONDYLITIS
     Dosage: 1/2 DAYS, TOTAL DAILY DOSE - 90 MG.
     Route: 048
     Dates: start: 20150615
  3. SALAZOPYRIN [Concomitant]
     Active Substance: SULFASALAZINE
     Indication: ANKYLOSING SPONDYLITIS
     Dosage: TOTAL DAILY DOSE- 1500 MG
     Route: 048
     Dates: start: 201401

REACTIONS (2)
  - Drug ineffective [Unknown]
  - Pruritus [Recovered/Resolved]

NARRATIVE: CASE EVENT DATE: 20160321
